FAERS Safety Report 17526993 (Version 2)
Quarter: 2020Q1

REPORT INFORMATION
  Report Type: Spontaneous
  Country: JP (occurrence: JP)
  Receive Date: 20200311
  Receipt Date: 20200330
  Transmission Date: 20200409
  Serious: Yes (Hospitalization, Other)
  Sender: FDA-Public Use
  Company Number: JP-MACLEODS PHARMACEUTICALS US LTD-MAC2020025512

PATIENT

DRUGS (12)
  1. CANDESARTAN. [Suspect]
     Active Substance: CANDESARTAN
     Dosage: UNK
     Route: 065
     Dates: start: 201206
  2. PEGINTERFERON ALFA-2B [Suspect]
     Active Substance: PEGINTERFERON ALFA-2B
     Indication: HEPATITIS C VIRUS TEST POSITIVE
     Dosage: 600 MILLIGRAM
     Route: 058
     Dates: start: 200901, end: 200903
  3. AMLODIPINE [Suspect]
     Active Substance: AMLODIPINE BESYLATE
     Indication: HYPERTENSION
     Dosage: 5 MILLIGRAM, QD, TABLET
     Route: 048
  4. NICARDIPINE HYDROCHLORIDE. [Suspect]
     Active Substance: NICARDIPINE HYDROCHLORIDE
     Indication: HYPERTENSION
     Dosage: UNK
     Route: 065
  5. AMLODIPINE [Suspect]
     Active Substance: AMLODIPINE BESYLATE
     Dosage: UNK
     Route: 065
  6. PEGINTERFERON ALFA-2B [Suspect]
     Active Substance: PEGINTERFERON ALFA-2B
     Indication: HEPATITIS CHRONIC ACTIVE
  7. AMLODIPINE [Suspect]
     Active Substance: AMLODIPINE BESYLATE
     Dosage: UNK
     Route: 065
  8. RIBAVIRIN. [Suspect]
     Active Substance: RIBAVIRIN
     Indication: HEPATITIS CHRONIC ACTIVE
  9. URSODEOXYCHOLIC ACID [Concomitant]
     Active Substance: URSODIOL
     Indication: PRODUCT USED FOR UNKNOWN INDICATION
     Dosage: 900 MILLIGRAM, QD
     Route: 065
  10. RIBAVIRIN. [Suspect]
     Active Substance: RIBAVIRIN
     Indication: HEPATITIS C VIRUS TEST POSITIVE
     Dosage: 80 MICROGRAM, TABLET
     Route: 058
     Dates: start: 200901, end: 200903
  11. CANDESARTAN. [Suspect]
     Active Substance: CANDESARTAN
     Indication: HYPERTENSION
     Dosage: 8 MILLIGRAM, QD, TABLET
     Route: 048
     Dates: start: 2010, end: 201102
  12. ATENOLOL TABLET [Suspect]
     Active Substance: ATENOLOL
     Indication: HYPERTENSION
     Dosage: 50 MILLIGRAM, QD, 4 MONTHS
     Route: 048

REACTIONS (8)
  - Drug ineffective [Unknown]
  - Alanine aminotransferase abnormal [Unknown]
  - Drug hypersensitivity [Unknown]
  - Headache [Recovering/Resolving]
  - Fixed eruption [Recovered/Resolved]
  - Therapeutic product cross-reactivity [Recovered/Resolved]
  - Condition aggravated [Unknown]
  - Fatigue [Recovered/Resolved]

NARRATIVE: CASE EVENT DATE: 2009
